FAERS Safety Report 4435138-6 (Version None)
Quarter: 2004Q3

REPORT INFORMATION
  Report Type: 
  Country: None (occurrence: None)
  Receive Date: 20040826
  Receipt Date: 20040813
  Transmission Date: 20050211
  Serious: Yes (Death, Other)
  Sender: FDA-Public Use
  Company Number: USA-2004-0013925

PATIENT
  Age: 3 Year
  Sex: Female

DRUGS (5)
  1. CEFDITOREN PIVOXIL (SIMILAR TO NDA 21-222) (CEFDITOREN PIVOXIL) [Suspect]
     Indication: UPPER RESPIRATORY TRACT INFLAMMATION
     Dosage: 43 MG, TID, ORAL
     Route: 048
     Dates: start: 20030221, end: 20030222
  2. CALONAL SYRUP [Concomitant]
  3. POLARAMINE SYRUP (CHLORPHENAMINE MALEATE) [Concomitant]
  4. ASVERIN GRANULES (TIPEPIDINE HIBENZATE) [Concomitant]
  5. ZITHROMAC GRANULES (AZITHROMYCIN) [Concomitant]

REACTIONS (19)
  - BRONCHOPNEUMONIA [None]
  - CATHETER SITE HAEMORRHAGE [None]
  - DERMATITIS BULLOUS [None]
  - HAEMORRHAGIC DIATHESIS [None]
  - HYPOXIA [None]
  - INCREASED UPPER AIRWAY SECRETION [None]
  - MUCOSAL HAEMORRHAGE [None]
  - OXYGEN SATURATION DECREASED [None]
  - PLATELET COUNT DECREASED [None]
  - PLEURAL EFFUSION [None]
  - PNEUMOMEDIASTINUM [None]
  - PNEUMONIA [None]
  - PNEUMONIA STREPTOCOCCAL [None]
  - PNEUMOTHORAX [None]
  - PULMONARY HAEMORRHAGE [None]
  - RESPIRATORY ARREST [None]
  - RESPIRATORY FAILURE [None]
  - STAPHYLOCOCCAL INFECTION [None]
  - TOXIC EPIDERMAL NECROLYSIS [None]
